FAERS Safety Report 6440628-0 (Version None)
Quarter: 2009Q4

REPORT INFORMATION
  Report Type: 
  Country: None (occurrence: None)
  Receive Date: 20091116
  Receipt Date: 20091102
  Transmission Date: 20100525
  Serious: Yes (Disabling)
  Sender: FDA-Public Use
  Company Number: PHHY2009PL47711

PATIENT
  Sex: Female
  Weight: 73 kg

DRUGS (4)
  1. GLEEVEC [Suspect]
     Indication: CHRONIC MYELOID LEUKAEMIA
     Dosage: 400 MG DAILY
     Route: 048
     Dates: start: 20080227, end: 20090917
  2. LETROX [Concomitant]
     Route: 048
  3. FUROSEMID [Concomitant]
     Dosage: UNK
     Route: 048
     Dates: start: 20080101
  4. ENARENAL [Concomitant]
     Route: 048

REACTIONS (2)
  - MOVEMENT DISORDER [None]
  - POLYNEUROPATHY [None]
